FAERS Safety Report 8423464-5 (Version None)
Quarter: 2012Q2

REPORT INFORMATION
  Report Type: 
  Country: None (occurrence: None)
  Receive Date: 20120608
  Receipt Date: 20120605
  Transmission Date: 20120825
  Serious: Yes (Other)
  Sender: FDA-Public Use
  Company Number: US-ENDO PHARMACEUTICALS INC.-OPCR20121324

PATIENT
  Sex: Female

DRUGS (5)
  1. OPANA ER [Concomitant]
     Dosage: 40 MG
     Route: 048
     Dates: end: 20120501
  2. OXYCODONE HCL [Concomitant]
     Indication: BREAKTHROUGH PAIN
     Dosage: 30 MG
     Route: 048
  3. OPANA ER [Suspect]
     Indication: FIBROMYALGIA
     Route: 048
     Dates: start: 20120501, end: 20120501
  4. OPANA ER [Suspect]
     Indication: PAIN
     Route: 048
     Dates: start: 20120501
  5. OPANA ER [Concomitant]

REACTIONS (2)
  - INTENTIONAL DRUG MISUSE [None]
  - DRUG INEFFECTIVE [None]
